FAERS Safety Report 4383815-8 (Version None)
Quarter: 2004Q2

REPORT INFORMATION
  Report Type: 
  Country: None (occurrence: None)
  Receive Date: 20040608
  Receipt Date: 20031104
  Transmission Date: 20050107
  Serious: Yes (Other)
  Sender: FDA-Public Use
  Company Number: 200314067BCC

PATIENT
  Age: 23 Year
  Sex: Male
  Weight: 58.9676 kg

DRUGS (1)
  1. ALEVE [Suspect]
     Indication: PAIN
     Dosage: 440 MG, ONCE, ORAL
     Route: 048
     Dates: start: 20031103

REACTIONS (8)
  - ANAPHYLACTIC REACTION [None]
  - DYSPHAGIA [None]
  - DYSPNOEA [None]
  - LOCAL SWELLING [None]
  - OROPHARYNGEAL SWELLING [None]
  - PRURITUS [None]
  - SWELLING FACE [None]
  - URTICARIA [None]
